FAERS Safety Report 10048739 (Version 2)
Quarter: 2014Q2

REPORT INFORMATION
  Report Type: Spontaneous
  Country: GB (occurrence: GB)
  Receive Date: 20140331
  Receipt Date: 20140402
  Transmission Date: 20141212
  Serious: Yes (Other)
  Sender: FDA-Public Use
  Company Number: GB-PFIZER INC-2014089843

PATIENT
  Age: 45 Year
  Sex: Male

DRUGS (7)
  1. LYRICA [Suspect]
     Indication: ANXIETY
     Dosage: 300 MG, 2X/DAY
     Route: 048
  2. CODEINE [Concomitant]
     Dosage: UNK
  3. DIAZEPAM [Concomitant]
     Dosage: UNK
  4. DULOXETINE [Concomitant]
     Dosage: UNK
  5. MIRTAZAPINE [Concomitant]
     Dosage: UNK
  6. PROPRANOLOL HYDROCHLORIDE [Concomitant]
     Dosage: UNK
  7. ZOPICLONE [Concomitant]
     Dosage: UNK

REACTIONS (1)
  - Visual brightness [Not Recovered/Not Resolved]
